FAERS Safety Report 7866941-8 (Version None)
Quarter: 2011Q4

REPORT INFORMATION
  Report Type: 
  Country: None (occurrence: None)
  Receive Date: 20111028
  Receipt Date: 20111025
  Transmission Date: 20120403
  Serious: Yes (Hospitalization)
  Sender: FDA-Public Use
  Company Number: PL-ROCHE-794893

PATIENT
  Sex: Male

DRUGS (4)
  1. COPEGUS [Suspect]
     Indication: HEPATITIS C
     Route: 048
     Dates: start: 20101130, end: 20110712
  2. PEGINTERFERON ALFA-2A [Suspect]
     Indication: HEPATITIS C
     Route: 058
     Dates: start: 20101130, end: 20110722
  3. FUROSEMIDE [Concomitant]
     Dosage: DRUG NAME REPORTED AS: FUROSEMIDUM
     Route: 048
  4. DEXTROSE [Concomitant]
     Indication: PROPHYLAXIS
     Route: 042

REACTIONS (1)
  - ASCITES [None]
